FAERS Safety Report 5647663-0 (Version None)
Quarter: 2008Q1

REPORT INFORMATION
  Report Type: 
  Country: None (occurrence: None)
  Receive Date: 20080303
  Receipt Date: 20080220
  Transmission Date: 20080703
  Serious: Yes (Other)
  Sender: FDA-Public Use
  Company Number: US-PFIZER INC-2008001724

PATIENT
  Sex: Male
  Weight: 88.9 kg

DRUGS (9)
  1. VIAGRA [Suspect]
     Indication: ERECTILE DYSFUNCTION
  2. METOPROLOL TARTRATE [Concomitant]
  3. AVALIDE [Concomitant]
  4. DIGOXIN [Concomitant]
  5. LANOXICAPS [Concomitant]
  6. TAMBOCOR [Concomitant]
  7. ASPIRIN [Concomitant]
  8. NASACORT [Concomitant]
  9. ZOCOR [Concomitant]

REACTIONS (1)
  - ANGIOSARCOMA [None]
